FAERS Safety Report 15270098 (Version 2)
Quarter: 2018Q3

REPORT INFORMATION
  Report Type: Spontaneous
  Country: US (occurrence: US)
  Receive Date: 20180813
  Receipt Date: 20180817
  Transmission Date: 20181010
  Serious: No
  Sender: FDA-Public Use
  Company Number: US-PFIZER INC-2018323150

PATIENT
  Age: 60 Year
  Sex: Female
  Weight: 38.95 kg

DRUGS (2)
  1. CHANTIX [Suspect]
     Active Substance: VARENICLINE TARTRATE
     Indication: SMOKING CESSATION THERAPY
     Dosage: 0.5 MG, TWO A DAY
     Dates: start: 20180731, end: 20180808
  2. CHANTIX [Suspect]
     Active Substance: VARENICLINE TARTRATE
     Dosage: 1 MG, TWICE DAILY

REACTIONS (7)
  - Headache [Recovering/Resolving]
  - Migraine [Unknown]
  - Nausea [Unknown]
  - Drug dose omission [Unknown]
  - Extra dose administered [Unknown]
  - Vomiting [Recovered/Resolved]
  - Hypophagia [Unknown]

NARRATIVE: CASE EVENT DATE: 20180731
